FAERS Safety Report 6477426-8 (Version None)
Quarter: 2009Q4

REPORT INFORMATION
  Report Type: 
  Country: None (occurrence: None)
  Receive Date: 20091207
  Receipt Date: 20091105
  Transmission Date: 20100525
  Serious: Yes (Congenital Anomaly)
  Sender: FDA-Public Use
  Company Number: FR-SANOFI-AVENTIS-2009SA000106

PATIENT
  Sex: Female

DRUGS (3)
  1. LANTUS [Suspect]
     Dosage: DOSE:100 INTERNATIONAL UNIT(S)/MILLILITRE
     Route: 058
  2. NOVORAPID [Suspect]
     Dosage: DOSE:100 INTERNATIONAL UNIT(S)/MILLILITRE
     Route: 058
  3. RENITEC /NET/ [Suspect]
     Route: 048
     Dates: end: 20090901

REACTIONS (3)
  - ABORTION INDUCED [None]
  - DRUG EXPOSURE DURING PREGNANCY [None]
  - LIMB MALFORMATION [None]
